FAERS Safety Report 5802839-4 (Version None)
Quarter: 2008Q3

REPORT INFORMATION
  Report Type: 
  Country: None (occurrence: None)
  Receive Date: 20080703
  Receipt Date: 20080624
  Transmission Date: 20090109
  Serious: Yes (Hospitalization)
  Sender: FDA-Public Use
  Company Number: 87179

PATIENT
  Sex: Female

DRUGS (1)
  1. KETOCONAZOLE [Suspect]
     Indication: GENITAL DISCHARGE
     Dosage: ORAL
     Route: 048

REACTIONS (2)
  - HEPATITIS [None]
  - HYPERSENSITIVITY [None]
